FAERS Safety Report 5790069-4 (Version None)
Quarter: 2008Q2

REPORT INFORMATION
  Report Type: 
  Country: None (occurrence: None)
  Receive Date: 20080626
  Receipt Date: 20080226
  Transmission Date: 20081010
  Serious: No
  Sender: FDA-Public Use
  Company Number: A0669966A

PATIENT

DRUGS (1)
  1. ALLI [Suspect]
     Indication: DRUG USE FOR UNKNOWN INDICATION

REACTIONS (17)
  - ASTHENIA [None]
  - CHEST DISCOMFORT [None]
  - CHILLS [None]
  - COUGH [None]
  - DYSPNOEA [None]
  - GASTROINTESTINAL DISORDER [None]
  - HUNGER [None]
  - INFLUENZA [None]
  - NASAL CONGESTION [None]
  - NASOPHARYNGITIS [None]
  - NECK PAIN [None]
  - PAIN [None]
  - PANIC ATTACK [None]
  - PHARYNGITIS STREPTOCOCCAL [None]
  - PHARYNGOLARYNGEAL PAIN [None]
  - SINUS DISORDER [None]
  - WEIGHT INCREASED [None]
